FAERS Safety Report 24269502 (Version 1)
Quarter: 2024Q3

REPORT INFORMATION
  Report Type: Spontaneous
  Country: US (occurrence: US)
  Receive Date: 20240830
  Receipt Date: 20240830
  Transmission Date: 20241016
  Serious: Yes (Death, Hospitalization, Other)
  Sender: ADMA BIOLOGICS
  Company Number: US-ADMA BIOLOGICS INC.-US-2024ADM000110

PATIENT
  Age: 1 Day
  Sex: Male
  Weight: 2.76 kg

DRUGS (3)
  1. HUMAN IMMUNOGLOBULIN G [Suspect]
     Active Substance: HUMAN IMMUNOGLOBULIN G
     Indication: Thrombocytopenia
     Dosage: UNK, UNK
     Route: 042
  2. HUMAN IMMUNOGLOBULIN G [Suspect]
     Active Substance: HUMAN IMMUNOGLOBULIN G
     Indication: Aicardi-Goutieres syndrome
     Dosage: 2 GRAM PER KILOGRAM, UNK
     Route: 042
  3. METHYLPREDNISOLONE [Suspect]
     Active Substance: METHYLPREDNISOLONE
     Indication: Aicardi-Goutieres syndrome
     Dosage: 2 MG/KG, BID
     Route: 042

REACTIONS (11)
  - Aicardi-Goutieres syndrome [Fatal]
  - Respiratory failure [Fatal]
  - Pneumocystis jirovecii pneumonia [Unknown]
  - Condition aggravated [Unknown]
  - Hypertrophic cardiomyopathy [Unknown]
  - Left ventricular hypertrophy [Unknown]
  - Intraventricular haemorrhage [Unknown]
  - Thrombocytopenia [Unknown]
  - Transaminases increased [Unknown]
  - Lenticulostriatal vasculopathy [Unknown]
  - Off label use [Unknown]
